FAERS Safety Report 24372077 (Version 6)
Quarter: 2024Q4

REPORT INFORMATION
  Report Type: Spontaneous
  Country: US (occurrence: US)
  Receive Date: 20240927
  Receipt Date: 20241125
  Transmission Date: 20250115
  Serious: No
  Sender: PFIZER
  Company Number: US-PFIZER INC-202400262422

PATIENT
  Age: 13 Year
  Sex: Male

DRUGS (1)
  1. GENOTROPIN [Suspect]
     Active Substance: SOMATROPIN
     Dosage: 1.5 MG, DAILY

REACTIONS (4)
  - Injection site extravasation [Recovered/Resolved]
  - Injection site haemorrhage [Unknown]
  - Liquid product physical issue [Unknown]
  - Wrong technique in device usage process [Unknown]
